FAERS Safety Report 19276630 (Version 4)
Quarter: 2021Q3

REPORT INFORMATION
  Report Type: Report from Study
  Country: US (occurrence: US)
  Receive Date: 20210520
  Receipt Date: 20210907
  Transmission Date: 20211014
  Serious: Yes (Hospitalization)
  Sender: FDA-Public Use
  Company Number: US-BIOGEN-2021BI01011567

PATIENT
  Age: 51 Year
  Sex: Female

DRUGS (5)
  1. AVONEX [Suspect]
     Active Substance: INTERFERON BETA-1A
     Dosage: STARTED WITH 7.5MCG ON DAY1 (20 APR 2021); WEEK 2 (27 APR 2021) TITRATED TO 15 MCG; WEEK 3 (04 MA...
     Route: 065
     Dates: start: 20210427
  2. AVONEX [Suspect]
     Active Substance: INTERFERON BETA-1A
     Route: 065
     Dates: start: 20210511, end: 20210513
  3. AVONEX [Suspect]
     Active Substance: INTERFERON BETA-1A
     Dosage: STARTED WITH 7.5MCG ON DAY1 (20 APR 2021); WEEK 2 (27 APR 2021) TITRATED TO 15 MCG; WEEK 3 (04 MA...
     Route: 065
     Dates: start: 20210511, end: 20210511
  4. AVONEX [Suspect]
     Active Substance: INTERFERON BETA-1A
     Dosage: STARTED WITH 7.5MCG ON DAY1 (20 APR 2021); WEEK 2 (27 APR 2021) TITRATED TO 15 MCG; WEEK 3 (04 MA...
     Route: 065
     Dates: start: 20210504
  5. AVONEX [Suspect]
     Active Substance: INTERFERON BETA-1A
     Indication: MULTIPLE SCLEROSIS
     Dosage: STARTED WITH 7.5MCG ON DAY1 (20 APR 2021); WEEK 2 (27 APR 2021) TITRATED TO 15 MCG; WEEK 3 (04 MA...
     Route: 065
     Dates: start: 20210420

REACTIONS (7)
  - Vomiting [Unknown]
  - Multiple sclerosis [Recovered/Resolved]
  - Headache [Recovered/Resolved]
  - Disorientation [Recovered/Resolved]
  - Diabetic ketoacidosis [Unknown]
  - Cardiac failure [Recovered/Resolved]
  - Renal failure [Recovered/Resolved]

NARRATIVE: CASE EVENT DATE: 2021
